FAERS Safety Report 12039324 (Version 1)
Quarter: 2016Q1

REPORT INFORMATION
  Report Type: Spontaneous
  Country: US (occurrence: None)
  Receive Date: 20160205
  Receipt Date: 20160205
  Transmission Date: 20160526
  Serious: No
  Sender: FDA-Public Use
  Company Number: None

PATIENT
  Age: 68 Year
  Sex: Male
  Weight: 75.3 kg

DRUGS (20)
  1. ABIRATERONE [Concomitant]
     Active Substance: ABIRATERONE
  2. AMLODIPINE  NORVASC) [Concomitant]
  3. ASPIRIN. [Concomitant]
     Active Substance: ASPIRIN
  4. LEVAQUIN [Concomitant]
     Active Substance: LEVOFLOXACIN
  5. TYLENOL [Concomitant]
     Active Substance: ACETAMINOPHEN
  6. HYDROMORPHONE (DILAUDID) [Concomitant]
  7. DOXYCYCLINE. [Concomitant]
     Active Substance: DOXYCYCLINE
  8. MAGNESIUM OXIDE (MAG-OX) [Concomitant]
  9. ABIRATERONE [Suspect]
     Active Substance: ABIRATERONE
     Indication: PROSTATE CANCER
     Route: 048
     Dates: start: 20111211, end: 20141216
  10. CABAZITAXEL [Suspect]
     Active Substance: CABAZITAXEL
     Indication: PROSTATE CANCER
     Route: 042
     Dates: start: 20141211, end: 20141211
  11. LIPITOR [Concomitant]
     Active Substance: ATORVASTATIN CALCIUM
  12. CALCIUM CARBONATE (TUMS ULTRA) [Concomitant]
  13. CHOLECALCIFEROL (VITAMIN D) [Concomitant]
  14. GLUCOSAMINE SULFATE (GLUCOSAMINE) [Concomitant]
  15. LIDOCAINE-PRILOCAINE (EMLA) [Concomitant]
  16. FERROUS SULFATE [Concomitant]
     Active Substance: FERROUS SULFATE\FERROUS SULFATE, DRIED
  17. POLYETHYLENE GLYCOL PACKET (GLYCOLAX) [Concomitant]
  18. DISP-30 [Concomitant]
  19. COUMADIN [Concomitant]
     Active Substance: WARFARIN SODIUM
  20. DRONABINOL (MARINOL) [Concomitant]

REACTIONS (3)
  - Urinary tract infection [None]
  - Cellulitis [None]
  - Abdominal pain lower [None]

NARRATIVE: CASE EVENT DATE: 20150216
